FAERS Safety Report 4901611-7 (Version None)
Quarter: 2006Q1

REPORT INFORMATION
  Report Type: 
  Country: None (occurrence: None)
  Receive Date: 20060206
  Receipt Date: 20050620
  Transmission Date: 20060701
  Serious: No
  Sender: FDA-Public Use
  Company Number: US-BRISTOL-MYERS SQUIBB COMPANY-13011028

PATIENT
  Sex: Male

DRUGS (3)
  1. TAXOL [Suspect]
  2. CARBOPLATIN [Suspect]
  3. RADIATION THERAPY [Concomitant]

REACTIONS (1)
  - MUSCLE SPASMS [None]
